FAERS Safety Report 8154782-6 (Version None)
Quarter: 2012Q1

REPORT INFORMATION
  Report Type: 
  Country: None (occurrence: None)
  Receive Date: 20120221
  Receipt Date: 20120209
  Transmission Date: 20120608
  Serious: Yes (Hospitalization, Disabling, Other)
  Sender: FDA-Public Use
  Company Number: PHHO2012DE002433

PATIENT
  Sex: Female
  Weight: 90.4 kg

DRUGS (9)
  1. EXJADE [Suspect]
     Dosage: 1000 MG, QD
     Dates: start: 20110928, end: 20111107
  2. LEVOTHYROXINE SODIUM [Concomitant]
     Dosage: UNK
     Dates: start: 20110415
  3. CITALOPRAM HYDROBROMIDE [Concomitant]
     Dosage: UNK
     Dates: start: 20110415
  4. RAMIPRIL [Concomitant]
     Dosage: 5 MG, QID
     Dates: start: 20110817
  5. BISOPROLOL FUMARATE [Concomitant]
     Dosage: 5 MG, QD
     Dates: start: 20110815
  6. INSULIN NOVO RAPITARD [Concomitant]
     Dosage: UNK
     Route: 058
     Dates: start: 20110803, end: 20111106
  7. METFORMIN HCL [Suspect]
     Indication: DIABETES MELLITUS
     Dosage: 1000 MG, BID
     Dates: start: 20110706, end: 20111106
  8. PANTO [Concomitant]
     Dosage: 20/40 MG AM
     Dates: start: 20111108
  9. EXJADE [Suspect]
     Indication: IRON OVERLOAD
     Dosage: 500 MG, QD
     Route: 048
     Dates: start: 20110817, end: 20110927

REACTIONS (7)
  - DIZZINESS [None]
  - VOMITING [None]
  - CONFUSIONAL STATE [None]
  - ABDOMINAL PAIN [None]
  - HYPOGLYCAEMIA [None]
  - ACIDOSIS [None]
  - RENAL FAILURE [None]
